FAERS Safety Report 24294235 (Version 1)
Quarter: 2024Q3

REPORT INFORMATION
  Report Type: Spontaneous
  Country: US (occurrence: None)
  Receive Date: 20240906
  Receipt Date: 20240906
  Transmission Date: 20241016
  Serious: No
  Sender: DOMPE FARMACEUTICI
  Company Number: US-FARMAPROD-202308-202405-1936

PATIENT
  Sex: Male

DRUGS (33)
  1. OXERVATE [Suspect]
     Active Substance: CENEGERMIN-BKBJ
     Indication: Neurotrophic keratopathy
     Route: 047
     Dates: start: 20240423
  2. OXERVATE [Suspect]
     Active Substance: CENEGERMIN-BKBJ
  3. GENTEAL TEARS [Concomitant]
     Active Substance: DEXTRAN 70\HYPROMELLOSE 2910 (4000 MPA.S)
     Dosage: 0.1-0.3-0.2 %
  4. KLARITY [Concomitant]
     Dosage: 0.25 %
  5. ZINC SULFATE [Concomitant]
     Active Substance: ZINC SULFATE
     Dosage: (220)
  6. TIZANIDINE HYDROCHLORIDE [Concomitant]
     Active Substance: TIZANIDINE HYDROCHLORIDE
  7. FLOMAX [Concomitant]
     Active Substance: TAMSULOSIN HYDROCHLORIDE
  8. TACROLIMUS [Concomitant]
     Active Substance: TACROLIMUS
  9. SULFAMETHOXAZOLE\TRIMETHOPRIM [Concomitant]
     Active Substance: SULFAMETHOXAZOLE\TRIMETHOPRIM
  10. RIBOFLAVIN [Concomitant]
     Active Substance: RIBOFLAVIN
  11. PREDNISONE [Concomitant]
     Active Substance: PREDNISONE
  12. PAROXETINE HYDROCHLORIDE [Concomitant]
     Active Substance: PAROXETINE HYDROCHLORIDE\PAROXETINE HYDROCHLORIDE ANHYDROUS
  13. PANTOPRAZOLE SODIUM [Concomitant]
     Active Substance: PANTOPRAZOLE SODIUM
  14. ONDANSETRON HYDROCHLORIDE [Concomitant]
     Active Substance: ONDANSETRON HYDROCHLORIDE
  15. NIACIN [Concomitant]
     Active Substance: NIACIN
  16. VITAMINS [Concomitant]
     Active Substance: VITAMINS
  17. METOPROLOL SUCCINATE [Concomitant]
     Active Substance: METOPROLOL SUCCINATE
  18. METHOCARBAMOL [Concomitant]
     Active Substance: METHOCARBAMOL
  19. LORAZEPAM [Concomitant]
     Active Substance: LORAZEPAM
  20. LOPERAMIDE [Concomitant]
     Active Substance: LOPERAMIDE
  21. LEFLUNOMIDE [Concomitant]
     Active Substance: LEFLUNOMIDE
  22. GAMMAGARD [Concomitant]
     Active Substance: HUMAN IMMUNOGLOBULIN G
     Dosage: VIAL
  23. ACETAMINOPHEN\HYDROCODONE [Concomitant]
     Active Substance: ACETAMINOPHEN\HYDROCODONE
  24. GABAPENTIN [Concomitant]
     Active Substance: GABAPENTIN
  25. FLUOROURACIL [Concomitant]
     Active Substance: FLUOROURACIL
  26. FENOFIBRATE [Concomitant]
     Active Substance: FENOFIBRATE
  27. DICYCLOMINE HYDROCHLORIDE [Concomitant]
     Active Substance: DICYCLOMINE HYDROCHLORIDE
  28. ACYCLOVIR [Concomitant]
     Active Substance: ACYCLOVIR
  29. VITAMIN D3 [Concomitant]
     Active Substance: CHOLECALCIFEROL
  30. CALCIUM CARBONATE [Concomitant]
     Active Substance: CALCIUM CARBONATE
  31. BENZONATATE [Concomitant]
     Active Substance: BENZONATATE
  32. AZITHROMYCIN [Concomitant]
     Active Substance: AZITHROMYCIN
  33. ASPIRIN [Concomitant]
     Active Substance: ASPIRIN

REACTIONS (1)
  - Corneal disorder [Unknown]
